FAERS Safety Report 16762413 (Version 1)
Quarter: 2019Q3

REPORT INFORMATION
  Report Type: Spontaneous
  Country: CN (occurrence: CN)
  Receive Date: 20190831
  Receipt Date: 20190831
  Transmission Date: 20191005
  Serious: Yes (Hospitalization, Other)
  Sender: FDA-Public Use
  Company Number: CN-MICRO LABS LIMITED-ML2019-02093

PATIENT
  Age: 17 Year
  Sex: Female

DRUGS (5)
  1. ADENOSINE. [Suspect]
     Active Substance: ADENOSINE
     Indication: TACHYARRHYTHMIA
  2. METOPROLOL. [Suspect]
     Active Substance: METOPROLOL
     Indication: TACHYARRHYTHMIA
  3. AMIODARONE [Suspect]
     Active Substance: AMIODARONE
     Indication: TACHYARRHYTHMIA
  4. VERAPAMIL HYDROCHLORIDE. [Suspect]
     Active Substance: VERAPAMIL HYDROCHLORIDE
     Indication: TACHYARRHYTHMIA
  5. ASPIRIN. [Concomitant]
     Active Substance: ASPIRIN
     Route: 048

REACTIONS (3)
  - Condition aggravated [Recovered/Resolved]
  - Cardiogenic shock [Recovered/Resolved]
  - Drug ineffective [Unknown]
